FAERS Safety Report 8595917-0 (Version None)
Quarter: 2012Q3

REPORT INFORMATION
  Report Type: 
  Country: None (occurrence: None)
  Receive Date: 20120815
  Receipt Date: 20120719
  Transmission Date: 20120928
  Serious: Yes (Hospitalization)
  Sender: FDA-Public Use
  Company Number: CN-ASTRAZENECA-2010SE11259

PATIENT
  Sex: Male
  Weight: 65 kg

DRUGS (1)
  1. PLENDIL [Suspect]
     Indication: HYPERTENSION
     Route: 048
     Dates: start: 20081012, end: 20090215

REACTIONS (4)
  - GINGIVAL PAIN [None]
  - GINGIVAL SWELLING [None]
  - BRAIN STEM INFARCTION [None]
  - GINGIVAL HYPERPLASIA [None]
